FAERS Safety Report 6096340-3 (Version None)
Quarter: 2009Q1

REPORT INFORMATION
  Report Type: 
  Country: None (occurrence: None)
  Receive Date: 20090227
  Receipt Date: 20090121
  Transmission Date: 20090719
  Serious: Yes (Life-Threatening, Hospitalization, Other)
  Sender: FDA-Public Use
  Company Number: A0756803A

PATIENT
  Age: 9 Year
  Sex: Male

DRUGS (4)
  1. LAMICTAL [Suspect]
     Indication: BIPOLAR DISORDER
     Dosage: 100MG UNKNOWN
     Route: 048
     Dates: start: 20080818, end: 20081106
  2. LITHIUM [Concomitant]
  3. SEROQUEL [Concomitant]
  4. STRATTERA [Concomitant]

REACTIONS (4)
  - BLISTER [None]
  - SKIN EXFOLIATION [None]
  - STEVENS-JOHNSON SYNDROME [None]
  - VOMITING [None]
